FAERS Safety Report 9692740 (Version 1)
Quarter: 2013Q4

REPORT INFORMATION
  Report Type: Spontaneous
  Country: ES (occurrence: ES)
  Receive Date: 20131118
  Receipt Date: 20131118
  Transmission Date: 20140711
  Serious: Yes (Life-Threatening, Hospitalization, Other)
  Sender: FDA-Public Use
  Company Number: ES-MPIJNJ-2013JNJ001020

PATIENT
  Sex: 0

DRUGS (15)
  1. VELCADE [Suspect]
     Indication: PLASMA CELL MYELOMA
     Dosage: 1.3 MG/M2, UNK
     Route: 058
     Dates: start: 20130923
  2. VELCADE [Suspect]
     Dosage: UNK
     Route: 042
  3. MELPHALAN [Suspect]
     Indication: PLASMA CELL MYELOMA
     Dosage: UNK
     Route: 065
     Dates: start: 20130923
  4. PREDNISONE [Suspect]
     Indication: PLASMA CELL MYELOMA
     Dosage: UNK
     Route: 065
     Dates: start: 20130923
  5. DIGOXIN [Concomitant]
  6. FUROSEMIDE [Concomitant]
  7. PANTOPRAZOLE [Concomitant]
  8. MASTICAL D [Concomitant]
  9. ZOMETA [Concomitant]
  10. LEVOGASTROL [Concomitant]
  11. PROZAC [Concomitant]
  12. SERC                               /00034201/ [Concomitant]
  13. SOMAZINA                           /00434801/ [Concomitant]
  14. LUDIOMIL                           /00331902/ [Concomitant]
  15. ACETAMINOPHEN [Concomitant]

REACTIONS (2)
  - Stevens-Johnson syndrome [Unknown]
  - Ileus paralytic [Unknown]
